FAERS Safety Report 9848082 (Version 1)
Quarter: 2014Q1

REPORT INFORMATION
  Report Type: Spontaneous
  Country: US (occurrence: None)
  Receive Date: 20140127
  Receipt Date: 20140127
  Transmission Date: 20141002
  Serious: Yes (Other)
  Sender: FDA-Public Use
  Company Number: None

PATIENT
  Age: 41 Year
  Sex: Female
  Weight: 48.54 kg

DRUGS (8)
  1. CLONAZEPAM [Suspect]
     Indication: ANXIETY DISORDER
     Route: 048
     Dates: start: 20131230, end: 20140124
  2. ONE A DAY [Concomitant]
  3. CALCIUM POTASSIUM [Concomitant]
  4. E [Concomitant]
  5. ZINC [Concomitant]
  6. LYSINE [Concomitant]
  7. CLARITIN [Concomitant]
  8. ALLEGRA [Concomitant]

REACTIONS (5)
  - Product quality issue [None]
  - Product substitution issue [None]
  - Pruritus [None]
  - Urticaria [None]
  - Rash morbilliform [None]
